FAERS Safety Report 10235768 (Version 1)
Quarter: 2014Q2

REPORT INFORMATION
  Report Type: Spontaneous
  Country: US (occurrence: US)
  Receive Date: 20140613
  Receipt Date: 20140613
  Transmission Date: 20141212
  Serious: No
  Sender: FDA-Public Use
  Company Number: US-PFIZER INC-2014159058

PATIENT
  Sex: Female

DRUGS (3)
  1. LYRICA [Suspect]
     Indication: NEURALGIA
     Dosage: UNK
  2. LYRICA [Suspect]
     Indication: DEPRESSION
  3. LOTREL [Suspect]
     Indication: BLOOD PRESSURE
     Dosage: UNK

REACTIONS (2)
  - Swelling [Unknown]
  - Pain [Unknown]
